FAERS Safety Report 19815654 (Version 2)
Quarter: 2021Q3

REPORT INFORMATION
  Report Type: Spontaneous
  Country: BR (occurrence: BR)
  Receive Date: 20210910
  Receipt Date: 20210922
  Transmission Date: 20211014
  Serious: Yes (Other)
  Sender: FDA-Public Use
  Company Number: NVSC2021BR199927

PATIENT
  Sex: Female
  Weight: 56 kg

DRUGS (5)
  1. TRAVATAN [Suspect]
     Active Substance: TRAVOPROST
     Dosage: 01 DROP IN EACH EYE AT NIGHT
     Route: 047
     Dates: start: 2015
  2. LATANOPROSTA [Concomitant]
     Dosage: 1 DRP EACH EYE
     Route: 047
     Dates: start: 202102
  3. TRAVATAN [Suspect]
     Active Substance: TRAVOPROST
     Indication: GLAUCOMA
     Dosage: 01 DROP IN EACH EYE AT NIGHT
     Route: 047
  4. LATANOPROSTA [Concomitant]
     Indication: GLAUCOMA
     Dosage: UNK (ABOUT 3 YERAS AND HALF A GO)
     Route: 047
  5. TRAVOPROSTA [Concomitant]
     Active Substance: TRAVOPROST
     Indication: PRODUCT USED FOR UNKNOWN INDICATION
     Dosage: UNK (ABOUT 3 YERAS AND HALF A GO)
     Route: 065

REACTIONS (17)
  - Osteoarthritis [Not Recovered/Not Resolved]
  - Eye infection [Recovered/Resolved]
  - Scoliosis [Not Recovered/Not Resolved]
  - Intervertebral disc protrusion [Not Recovered/Not Resolved]
  - Eye irritation [Recovered/Resolved]
  - Blindness unilateral [Not Recovered/Not Resolved]
  - Intraocular pressure increased [Recovered/Resolved]
  - Exostosis [Not Recovered/Not Resolved]
  - Intraocular pressure fluctuation [Unknown]
  - Osteoporosis [Not Recovered/Not Resolved]
  - Eye pain [Recovered/Resolved]
  - Lid sulcus deepened [Unknown]
  - Dry eye [Recovered/Resolved]
  - Eye irritation [Unknown]
  - Glaucoma [Not Recovered/Not Resolved]
  - Depression [Not Recovered/Not Resolved]
  - Eye infection [Recovered/Resolved]

NARRATIVE: CASE EVENT DATE: 2013
